FAERS Safety Report 19064335 (Version 1)
Quarter: 2021Q1

REPORT INFORMATION
  Report Type: Spontaneous
  Country: US (occurrence: US)
  Receive Date: 20210326
  Receipt Date: 20210326
  Transmission Date: 20210420
  Serious: No
  Sender: FDA-Public Use
  Company Number: US-TEVA-2021-US-1888340

PATIENT
  Age: 34 Year
  Sex: Female

DRUGS (4)
  1. NORTREL [Suspect]
     Active Substance: ETHINYL ESTRADIOL\NORETHINDRONE
     Indication: CONTRACEPTION
     Dosage: 0.5/35, 7/7/7
     Route: 065
  2. NECON [Suspect]
     Active Substance: ETHINYL ESTRADIOL\NORETHINDRONE
     Indication: CONTRACEPTION
     Dosage: NECON 0.5/35 AND NECON 7/7/7
     Dates: start: 2008
  3. NORTREL [Suspect]
     Active Substance: ETHINYL ESTRADIOL\NORETHINDRONE
     Indication: HORMONE REPLACEMENT THERAPY
  4. NECON [Suspect]
     Active Substance: ETHINYL ESTRADIOL\NORETHINDRONE
     Indication: HORMONE REPLACEMENT THERAPY

REACTIONS (8)
  - Acne [Unknown]
  - Feeling abnormal [Unknown]
  - Headache [Unknown]
  - Alopecia [Unknown]
  - Hair growth abnormal [Unknown]
  - Female sex hormone level abnormal [Unknown]
  - Throat tightness [Recovered/Resolved]
  - Seborrhoea [Unknown]

NARRATIVE: CASE EVENT DATE: 2021
